FAERS Safety Report 10528723 (Version 1)
Quarter: 2014Q4

REPORT INFORMATION
  Report Type: Spontaneous
  Country: US (occurrence: US)
  Receive Date: 20141020
  Receipt Date: 20141020
  Transmission Date: 20150528
  Serious: Yes (Hospitalization, Other)
  Sender: FDA-Public Use
  Company Number: US-PFIZER INC-2014287725

PATIENT
  Age: 60 Year
  Sex: Female
  Weight: 102.5 kg

DRUGS (3)
  1. LYRICA [Concomitant]
     Active Substance: PREGABALIN
     Dosage: UNK (AT NIGHT)
  2. CELEBREX [Suspect]
     Active Substance: CELECOXIB
     Dosage: 200 MG
  3. CELEBREX [Suspect]
     Active Substance: CELECOXIB
     Indication: OSTEOARTHRITIS
     Dosage: LOW DOSE
     Dates: start: 2002

REACTIONS (3)
  - Wrong drug administered [Unknown]
  - Upper respiratory tract infection [Unknown]
  - Cerebrovascular accident [Recovered/Resolved]

NARRATIVE: CASE EVENT DATE: 2002
